FAERS Safety Report 8861935 (Version 1)
Quarter: 2012Q4

REPORT INFORMATION
  Report Type: 
  Country: US (occurrence: US)
  Receive Date: 20121026
  Receipt Date: 20121026
  Transmission Date: 20130627
  Serious: No
  Sender: FDA-Public Use
  Company Number: US-009507513-1210USA009282

PATIENT
  Sex: Female

DRUGS (2)
  1. PEGINTRON [Suspect]
     Indication: HEPATITIS C
     Dosage: Redipen
     Dates: start: 20121011
  2. RIBAVIRIN [Suspect]
     Indication: HEPATITIS C
     Dosage: UNK
     Dates: start: 20121011

REACTIONS (6)
  - Feeling hot [Unknown]
  - Feeling cold [Unknown]
  - Eczema [Unknown]
  - Rash [Unknown]
  - Decreased appetite [Unknown]
  - Dry skin [Unknown]
